FAERS Safety Report 9866689 (Version 1)
Quarter: 2014Q1

REPORT INFORMATION
  Report Type: Spontaneous
  Country: US (occurrence: US)
  Receive Date: 20140204
  Receipt Date: 20140204
  Transmission Date: 20141002
  Serious: No
  Sender: FDA-Public Use
  Company Number: US-BIOGENIDEC-2014BI008671

PATIENT
  Sex: Female

DRUGS (7)
  1. TECFIDERA [Suspect]
     Indication: PRODUCT USED FOR UNKNOWN INDICATION
     Route: 048
     Dates: start: 20131122, end: 20131129
  2. TECFIDERA [Suspect]
     Indication: PRODUCT USED FOR UNKNOWN INDICATION
     Route: 048
     Dates: start: 20131130
  3. CALCIUM/VITAMIN D [Concomitant]
  4. EVENING PRIMROSE OIL [Concomitant]
  5. AMANTADINE [Concomitant]
  6. COMPLEX B-50 [Concomitant]
  7. FLOMAX [Concomitant]

REACTIONS (1)
  - Nephrolithiasis [Unknown]
